FAERS Safety Report 7338919-4 (Version None)
Quarter: 2011Q1

REPORT INFORMATION
  Report Type: 
  Country: None (occurrence: None)
  Receive Date: 20110308
  Receipt Date: 20110210
  Transmission Date: 20110831
  Serious: No
  Sender: FDA-Public Use
  Company Number: US-B.I. PHARMACEUTICALS,INC./RIDGEFIELD-2010-BP-15359BP

PATIENT
  Age: 74 Year
  Sex: Male

DRUGS (3)
  1. PRADAXA [Suspect]
     Indication: PULMONARY THROMBOSIS
     Dosage: 300 MG
     Route: 048
     Dates: start: 20101201
  2. ASPIRIN [Concomitant]
  3. METOPROLOL [Concomitant]
     Indication: HYPERTENSION

REACTIONS (1)
  - PERIPHERAL COLDNESS [None]
